FAERS Safety Report 11058546 (Version 1)
Quarter: 2015Q2

REPORT INFORMATION
  Report Type: Spontaneous
  Country: US (occurrence: None)
  Receive Date: 20150422
  Receipt Date: 20150422
  Transmission Date: 20150821
  Serious: Yes (Disabling)
  Sender: FDA-Public Use
  Company Number: None

PATIENT
  Age: 66 Year
  Sex: Female
  Weight: 113.4 kg

DRUGS (4)
  1. LOSARTAN 50 MG ROXANE [Suspect]
     Active Substance: LOSARTAN
     Indication: HYPERTENSION
     Dosage: 1 ONCE DAILY TAKEN BY MOUTH
     Route: 048
     Dates: start: 20150218, end: 20150318
  2. VITAMIN D [Concomitant]
     Active Substance: CHOLECALCIFEROL
  3. B-12 COMPLEX [Concomitant]
  4. METFORMIN [Concomitant]
     Active Substance: METFORMIN HYDROCHLORIDE

REACTIONS (4)
  - Product formulation issue [None]
  - Ligament pain [None]
  - Arthralgia [None]
  - Product colour issue [None]

NARRATIVE: CASE EVENT DATE: 20150209
